FAERS Safety Report 4613533-X (Version None)
Quarter: 2005Q1

REPORT INFORMATION
  Report Type: 
  Country: None (occurrence: None)
  Receive Date: 20050318
  Receipt Date: 20050318
  Transmission Date: 20050727
  Serious: Yes (Death, Life-Threatening, Hospitalization)
  Sender: FDA-Public Use
  Company Number: None

PATIENT
  Age: 81 Year
  Sex: Female
  Weight: 56.5 kg

DRUGS (6)
  1. REMICADE [Suspect]
     Indication: INFLAMMATION
     Dosage: 174 MG - 300MG IV INFUSION EVERY 8 WEEKS
     Route: 042
     Dates: start: 20020701, end: 20040811
  2. REMICADE [Suspect]
     Indication: RHEUMATOID ARTHRITIS
     Dosage: 174 MG - 300MG IV INFUSION EVERY 8 WEEKS
     Route: 042
     Dates: start: 20020701, end: 20040811
  3. FOSAMAX [Concomitant]
  4. HYDROCHLOROTHIAZIDE [Concomitant]
  5. POTASSIUM CHLORIDE [Concomitant]
  6. IMURAN [Concomitant]

REACTIONS (5)
  - IMMUNE SYSTEM DISORDER [None]
  - INFECTION [None]
  - MALAISE [None]
  - MYOCARDIAL INFARCTION [None]
  - PYREXIA [None]
